FAERS Safety Report 19733074 (Version 1)
Quarter: 2021Q3

REPORT INFORMATION
  Report Type: Spontaneous
  Country: CA (occurrence: CA)
  Receive Date: 20210823
  Receipt Date: 20210823
  Transmission Date: 20211014
  Serious: Yes (Other)
  Sender: FDA-Public Use
  Company Number: CA-GLENMARK PHARMACEUTICALS-2021GMK067437

PATIENT
  Age: 59 Year
  Sex: Female

DRUGS (3)
  1. URSODIOL. [Suspect]
     Active Substance: URSODIOL
     Indication: PRIMARY BILIARY CHOLANGITIS
     Dosage: 500 MILLIGRAM, BID
     Route: 048
  2. URSODIOL. [Suspect]
     Active Substance: URSODIOL
     Dosage: 250 MILLIGRAM, BID
     Route: 048
  3. URSODIOL. [Suspect]
     Active Substance: URSODIOL
     Dosage: 500 MILLIGRAM, BID (URSODIOL RESTARTED AFTER DESENSITIZATION)
     Route: 048

REACTIONS (1)
  - Type I hypersensitivity [Recovered/Resolved]
